FAERS Safety Report 7632041-5 (Version None)
Quarter: 2011Q3

REPORT INFORMATION
  Report Type: 
  Country: None (occurrence: None)
  Receive Date: 20110725
  Receipt Date: 20100607
  Transmission Date: 20111222
  Serious: No
  Sender: FDA-Public Use
  Company Number: US-BRISTOL-MYERS SQUIBB COMPANY-15136278

PATIENT
  Age: 65 Year
  Sex: Female
  Weight: 82 kg

DRUGS (4)
  1. COUMADIN [Suspect]
     Indication: THROMBOSIS
  2. INDERAL [Concomitant]
  3. XANAX [Concomitant]
  4. ERY-TAB [Concomitant]

REACTIONS (2)
  - RASH MACULAR [None]
  - ARTHRALGIA [None]
